FAERS Safety Report 4832497-7 (Version None)
Quarter: 2005Q4

REPORT INFORMATION
  Report Type: 
  Country: None (occurrence: None)
  Receive Date: 20051117
  Receipt Date: 20051013
  Transmission Date: 20060501
  Serious: Yes (Hospitalization)
  Sender: FDA-Public Use
  Company Number: 1824

PATIENT
  Age: 19 Year
  Sex: Female
  Weight: 74.8435 kg

DRUGS (5)
  1. AMNESTEEM [Suspect]
     Dosage: 40 MG QD PO
     Route: 048
     Dates: start: 20040825
  2. CLARAVIS [Suspect]
     Dosage: PO
     Route: 048
     Dates: start: 20050222
  3. AMITRIPTYLINE HCL [Concomitant]
  4. PARACETAMOL/HYDROCODONE BITARTRATE [Concomitant]
  5. FLUOXETINE [Concomitant]

REACTIONS (6)
  - BACK PAIN [None]
  - DEPRESSION [None]
  - ERYTHEMA INFECTIOSUM [None]
  - INSOMNIA [None]
  - MULTIPLE DRUG OVERDOSE [None]
  - SPINAL FRACTURE [None]
